FAERS Safety Report 25473211 (Version 1)
Quarter: 2025Q2

REPORT INFORMATION
  Report Type: Spontaneous
  Country: US (occurrence: US)
  Receive Date: 20250624
  Receipt Date: 20250624
  Transmission Date: 20250717
  Serious: No
  Sender: TAKEDA
  Company Number: US-TAKEDA-2025TUS054310

PATIENT
  Age: 26 Year
  Sex: Female

DRUGS (2)
  1. ENTYVIO [Suspect]
     Active Substance: VEDOLIZUMAB
     Indication: Immunodeficiency common variable
  2. BUDESONIDE [Suspect]
     Active Substance: BUDESONIDE
     Indication: Product used for unknown indication

REACTIONS (5)
  - Off label use [Unknown]
  - Diarrhoea [Unknown]
  - Weight decreased [Unknown]
  - Plasma cells decreased [Unknown]
  - Abdominal distension [Unknown]
